FAERS Safety Report 6686517-8 (Version None)
Quarter: 2010Q2

REPORT INFORMATION
  Report Type: 
  Country: None (occurrence: None)
  Receive Date: 20100419
  Receipt Date: 20100409
  Transmission Date: 20101027
  Serious: Yes (Hospitalization, Other)
  Sender: FDA-Public Use
  Company Number: BR-ROCHE-696667

PATIENT
  Sex: Male
  Weight: 101 kg

DRUGS (6)
  1. XENICAL [Suspect]
     Indication: WEIGHT CONTROL
     Dosage: DOSE: 120 MG DAY/AT LUNCH TIME/AS NEEDED
     Route: 065
     Dates: start: 20050101
  2. XENICAL [Suspect]
     Route: 065
     Dates: start: 20090101
  3. TEGRETOL [Concomitant]
     Indication: CONVULSION
     Dates: start: 20080101
  4. GABAPENTIN [Concomitant]
     Indication: CONVULSION
     Dosage: DRUG: GABNEURIM
     Dates: start: 20090101
  5. CAPTOPRIL [Concomitant]
     Dosage: AS NEEDED
     Dates: start: 20080101
  6. METFORMIN HCL [Concomitant]
     Dosage: MANY YEARS AGO, DRUG: GLIFAGE

REACTIONS (4)
  - ABASIA [None]
  - MEDICATION ERROR [None]
  - POLYNEUROPATHY [None]
  - STRESS [None]
